FAERS Safety Report 14325267 (Version 1)
Quarter: 2017Q4

REPORT INFORMATION
  Report Type: Spontaneous
  Country: US (occurrence: US)
  Receive Date: 20171224
  Receipt Date: 20171224
  Transmission Date: 20180321
  Serious: Yes (Life-Threatening)
  Sender: FDA-Public Use
  Company Number: None

PATIENT
  Age: 61 Year
  Sex: Female
  Weight: 108.9 kg

DRUGS (12)
  1. LATEX [Concomitant]
     Active Substance: NATURAL LATEX RUBBER
  2. AMILORIDE [Concomitant]
     Active Substance: AMILORIDE
  3. METFORMIN [Suspect]
     Active Substance: METFORMIN HYDROCHLORIDE
     Indication: GLYCOSYLATED HAEMOGLOBIN INCREASED
     Dosage: ?          QUANTITY:1 TABLET(S);?
     Route: 048
     Dates: start: 20170821, end: 20170926
  4. ATENOLOL. [Concomitant]
     Active Substance: ATENOLOL
  5. VITAMIN D3 [Concomitant]
     Active Substance: CHOLECALCIFEROL
  6. PRILOSEC [Concomitant]
     Active Substance: OMEPRAZOLE MAGNESIUM
  7. ZANTAC [Concomitant]
     Active Substance: RANITIDINE HYDROCHLORIDE
  8. QUERCETIN [Concomitant]
     Active Substance: QUERCETIN
  9. DOXEPIN [Concomitant]
     Active Substance: DOXEPIN
  10. SINGULAIR [Concomitant]
     Active Substance: MONTELUKAST SODIUM
  11. ZYRTEC [Concomitant]
     Active Substance: CETIRIZINE HYDROCHLORIDE
  12. VITAMIN C [Concomitant]
     Active Substance: ASCORBIC ACID

REACTIONS (3)
  - Myalgia [None]
  - Loss of personal independence in daily activities [None]
  - Bone pain [None]

NARRATIVE: CASE EVENT DATE: 20170925
